FAERS Safety Report 7567919-4 (Version None)
Quarter: 2011Q2

REPORT INFORMATION
  Report Type: 
  Country: None (occurrence: None)
  Receive Date: 20110616
  Receipt Date: 20110608
  Transmission Date: 20111010
  Serious: Yes (Hospitalization)
  Sender: FDA-Public Use
  Company Number: FUR-11-07

PATIENT
  Age: 75 Year
  Sex: Male

DRUGS (8)
  1. DIGOXIN [Concomitant]
  2. SOTALOL HCL [Concomitant]
  3. AMLODIPINE [Concomitant]
  4. ISOSORBIDE MONONITRATE [Concomitant]
  5. ACENOCOUMAROL [Concomitant]
  6. ATORVASTATIN [Concomitant]
  7. PERINDOPRIL ERBUMINE [Concomitant]
  8. FUROSEMIDE [Suspect]
     Dosage: 800MG

REACTIONS (8)
  - DISORIENTATION [None]
  - VENTRICULAR ARRHYTHMIA [None]
  - DRUG INTERACTION [None]
  - ELECTROCARDIOGRAM QRS COMPLEX PROLONGED [None]
  - RENAL FAILURE [None]
  - CARDIOGENIC SHOCK [None]
  - OVERDOSE [None]
  - ELECTROCARDIOGRAM QT PROLONGED [None]
